FAERS Safety Report 16839874 (Version 1)
Quarter: 2019Q4

REPORT INFORMATION
  Report Type: Spontaneous
  Country: US (occurrence: US)
  Receive Date: 20190922
  Receipt Date: 20190922
  Transmission Date: 20200122
  Serious: Yes (Life-Threatening)
  Sender: FDA-Public Use
  Company Number: None

PATIENT
  Age: 46 Year
  Sex: Male

DRUGS (4)
  1. TERBINAFINE. [Concomitant]
     Active Substance: TERBINAFINE
  2. CENTRUM  SILVER [Concomitant]
     Active Substance: MINERALS\VITAMINS
  3. CHANTIX [Suspect]
     Active Substance: VARENICLINE TARTRATE
     Indication: SMOKING CESSATION THERAPY
     Route: 048
     Dates: start: 20190914, end: 20190916
  4. ZANTAC [Concomitant]
     Active Substance: RANITIDINE HYDROCHLORIDE

REACTIONS (4)
  - Rash [None]
  - Throat tightness [None]
  - Oropharyngeal pain [None]
  - Oral mucosal blistering [None]

NARRATIVE: CASE EVENT DATE: 20190917
